FAERS Safety Report 8395034-9 (Version None)
Quarter: 2012Q1

REPORT INFORMATION
  Report Type: 
  Country: None (occurrence: None)
  Receive Date: 20120323
  Receipt Date: 20110629
  Transmission Date: 20120608
  Serious: Yes (Hospitalization)
  Sender: FDA-Public Use
  Company Number: 163-21880-11031795

PATIENT
  Age: 52 Year
  Sex: Male

DRUGS (8)
  1. CIALIS [Concomitant]
  2. MICARDIS (TELMISARTAN) (UNKNOWN) [Concomitant]
  3. OXYCODONE (OXYCODONE) (UNKNOWN) [Concomitant]
  4. NEXIUM [Concomitant]
  5. CRESTOR (ROSUVASTATIN) (UNKNOWN) [Concomitant]
  6. LASIX [Concomitant]
  7. REVLIMID [Suspect]
     Indication: MULTIPLE MYELOMA
     Dosage: 25 MG, 1 IN 1 D, PO 25 MG, 1 IN 1 D, PO
     Route: 048
     Dates: start: 20080201
  8. REVLIMID [Suspect]
     Indication: MULTIPLE MYELOMA
     Dosage: 25 MG, 1 IN 1 D, PO 25 MG, 1 IN 1 D, PO
     Route: 048
     Dates: start: 20110307

REACTIONS (1)
  - PNEUMONIA [None]
